FAERS Safety Report 22526260 (Version 18)
Quarter: 2025Q4

REPORT INFORMATION
  Report Type: Report from Study
  Country: MX (occurrence: MX)
  Receive Date: 20230606
  Receipt Date: 20251016
  Transmission Date: 20260118
  Serious: Yes (Hospitalization, Other)
  Sender: TAKEDA
  Company Number: MX-TAKEDA-2023TUS030384

PATIENT
  Age: 45 Year
  Sex: Male

DRUGS (2)
  1. VEDOLIZUMAB [Suspect]
     Active Substance: VEDOLIZUMAB
     Indication: Colitis ulcerative
     Dosage: 300 MILLIGRAM
  2. VEDOLIZUMAB [Suspect]
     Active Substance: VEDOLIZUMAB
     Dosage: 300 MILLIGRAM

REACTIONS (35)
  - Colitis ulcerative [Unknown]
  - Endotracheal intubation complication [Unknown]
  - Laryngeal stenosis [Unknown]
  - Rectal haemorrhage [Recovering/Resolving]
  - Speech disorder [Recovering/Resolving]
  - Hernia [Recovering/Resolving]
  - Productive cough [Recovering/Resolving]
  - Oxygen saturation decreased [Recovering/Resolving]
  - Suicidal ideation [Not Recovered/Not Resolved]
  - Pain [Recovering/Resolving]
  - Wound dehiscence [Recovering/Resolving]
  - Diarrhoea [Not Recovered/Not Resolved]
  - Procedural pain [Recovering/Resolving]
  - Impaired healing [Recovering/Resolving]
  - Anaemia [Unknown]
  - Hypoproteinaemia [Unknown]
  - Hypoalbuminaemia [Unknown]
  - Alopecia [Not Recovered/Not Resolved]
  - Depressive symptom [Not Recovered/Not Resolved]
  - Sleep disorder [Unknown]
  - Acute stress disorder [Unknown]
  - Stomal hernia [Not Recovered/Not Resolved]
  - Anxiety [Unknown]
  - Discomfort [Recovering/Resolving]
  - Abdominal pain [Unknown]
  - Tachycardia [Recovering/Resolving]
  - Dizziness [Recovered/Resolved]
  - Chills [Recovered/Resolved]
  - Pyrexia [Recovered/Resolved]
  - Anal fissure [Unknown]
  - Arthralgia [Recovering/Resolving]
  - Headache [Not Recovered/Not Resolved]
  - Nausea [Unknown]
  - Mobility decreased [Not Recovered/Not Resolved]
  - Fatigue [Not Recovered/Not Resolved]

NARRATIVE: CASE EVENT DATE: 20220930
